FAERS Safety Report 19880708 (Version 32)
Quarter: 2024Q4

REPORT INFORMATION
  Report Type: Report from Study
  Country: US (occurrence: US)
  Receive Date: 20210924
  Receipt Date: 20241219
  Transmission Date: 20250115
  Serious: Yes (Other)
  Sender: TAKEDA
  Company Number: US-TAKEDA-US202023466

PATIENT
  Age: 52 Year
  Sex: Female
  Weight: 95 kg

DRUGS (41)
  1. HUMAN IMMUNOGLOBULIN G [Suspect]
     Active Substance: HUMAN IMMUNOGLOBULIN G
     Indication: Primary immunodeficiency syndrome
     Dosage: 32 GRAM, Q2WEEKS
     Dates: start: 20171110
  2. HUMAN IMMUNOGLOBULIN G [Suspect]
     Active Substance: HUMAN IMMUNOGLOBULIN G
     Indication: Torticollis
     Dosage: 32 GRAM, Q2WEEKS
     Dates: start: 20171113
  3. HUMAN IMMUNOGLOBULIN G [Suspect]
     Active Substance: HUMAN IMMUNOGLOBULIN G
     Indication: Immunodeficiency common variable
  4. PENICILLIN [Suspect]
     Active Substance: PENICILLIN
     Indication: Product used for unknown indication
     Dosage: UNK
  5. BACTRIM [Suspect]
     Active Substance: SULFAMETHOXAZOLE\TRIMETHOPRIM
     Indication: Product used for unknown indication
     Dosage: UNK
  6. ZYRTEC [Concomitant]
     Active Substance: CETIRIZINE HYDROCHLORIDE
     Dosage: UNK
  7. CALCIUM CARBONATE\CHOLECALCIFEROL [Concomitant]
     Active Substance: CALCIUM CARBONATE\CHOLECALCIFEROL
     Dosage: UNK
  8. FLUTICASONE PROPIONATE [Concomitant]
     Active Substance: FLUTICASONE PROPIONATE
     Dosage: UNK
  9. ADVAIR HFA [Concomitant]
     Active Substance: FLUTICASONE PROPIONATE\SALMETEROL XINAFOATE
     Dosage: UNK
  10. TRINTELLIX [Concomitant]
     Active Substance: VORTIOXETINE HYDROBROMIDE
     Dosage: UNK
  11. ALBUTEROL SULFATE [Concomitant]
     Active Substance: ALBUTEROL SULFATE
     Dosage: UNK
  12. ALPRAZOLAM [Concomitant]
     Active Substance: ALPRAZOLAM
     Dosage: UNK
  13. LYRICA [Concomitant]
     Active Substance: PREGABALIN
     Dosage: UNK
  14. ABILIFY [Concomitant]
     Active Substance: ARIPIPRAZOLE
     Dosage: UNK
  15. IRON [Concomitant]
     Active Substance: IRON
     Dosage: UNK
  16. BOTOX [Concomitant]
     Active Substance: ONABOTULINUMTOXINA
     Indication: Migraine
     Dosage: UNK
  17. PENLAC [Concomitant]
     Active Substance: CICLOPIROX
     Indication: Product used for unknown indication
     Dosage: UNK
  18. LEVOFLOXACIN [Concomitant]
     Active Substance: LEVOFLOXACIN
     Dosage: UNK
  19. BUSPIRONE HCL [Concomitant]
     Active Substance: BUSPIRONE HYDROCHLORIDE
     Dosage: UNK
  20. FENTANYL [Concomitant]
     Active Substance: FENTANYL
     Dosage: UNK
  21. MONTELUKAST SODIUM [Concomitant]
     Active Substance: MONTELUKAST\MONTELUKAST SODIUM
     Dosage: UNK
  22. AMANTADINE [Concomitant]
     Active Substance: AMANTADINE
     Dosage: UNK
  23. TRAZODONE HCL [Concomitant]
     Active Substance: TRAZODONE HYDROCHLORIDE
     Dosage: UNK
  24. DILAUDID [Concomitant]
     Active Substance: HYDROMORPHONE HYDROCHLORIDE
     Dosage: UNK
  25. VITAMIN B12 [Concomitant]
     Active Substance: CYANOCOBALAMIN
     Dosage: UNK
  26. FOLPLEX [Concomitant]
     Active Substance: CHOLECALCIFEROL\CYANOCOBALAMIN CO-57\FOLIC ACID\PYRIDOXINE HYDROCHLORIDE
     Dosage: UNK
  27. DOXYCYCLINE HYCLATE [Concomitant]
     Active Substance: DOXYCYCLINE HYCLATE
     Dosage: UNK
  28. AZITHROMYCIN [Concomitant]
     Active Substance: AZITHROMYCIN
     Dosage: UNK
  29. DIPHENHYDRAMINE [Concomitant]
     Active Substance: DIPHENHYDRAMINE
     Dosage: UNK
  30. EPINEPHRINE [Concomitant]
     Active Substance: EPINEPHRINE
     Dosage: UNK
  31. FLONASE [Concomitant]
     Active Substance: FLUTICASONE PROPIONATE
     Dosage: UNK
  32. ACETAMINOPHEN [Concomitant]
     Active Substance: ACETAMINOPHEN
     Dosage: UNK
  33. LIDOCAINE [Concomitant]
     Active Substance: LIDOCAINE
     Dosage: UNK
  34. DOXYCYCLINE [Concomitant]
     Active Substance: DOXYCYCLINE
     Dosage: UNK
  35. Hyclate [Concomitant]
     Dosage: UNK
  36. VENTOLIN [Concomitant]
     Active Substance: ALBUTEROL SULFATE
     Dosage: UNK
  37. VITAMIN C [Concomitant]
     Active Substance: ASCORBIC ACID
     Dosage: UNK
  38. CICLOPIROX [Concomitant]
     Active Substance: CICLOPIROX
     Dosage: UNK
  39. OYSTER SHELL CACIUM WITH VITAMIN D [Concomitant]
     Dosage: UNK
  40. DIPHENHYDRAMINE HYDROCHLORIDE [Concomitant]
     Active Substance: DIPHENHYDRAMINE HYDROCHLORIDE
     Dosage: UNK
  41. VITAMIN B [Concomitant]
     Active Substance: VITAMIN B
     Dosage: UNK

REACTIONS (44)
  - Pneumonia [Recovered/Resolved]
  - Respiratory tract infection [Unknown]
  - Pulmonary artery dilatation [Unknown]
  - Aspiration [Unknown]
  - Breast injury [Unknown]
  - Pneumonia bacterial [Not Recovered/Not Resolved]
  - Fall [Unknown]
  - Breast mass [Unknown]
  - Pharyngitis [Not Recovered/Not Resolved]
  - Ear infection [Not Recovered/Not Resolved]
  - Depression [Unknown]
  - Neck pain [Unknown]
  - Immune system disorder [Unknown]
  - Arthritis [Unknown]
  - Chronic sinusitis [Unknown]
  - Dermatitis infected [Recovered/Resolved]
  - Fungal skin infection [Unknown]
  - Urinary tract infection [Unknown]
  - Rhinitis [Unknown]
  - Upper-airway cough syndrome [Unknown]
  - Panic attack [Unknown]
  - Arthropathy [Unknown]
  - Blood iron decreased [Unknown]
  - Asthma [Unknown]
  - Limb injury [Unknown]
  - Genital herpes [Unknown]
  - Localised infection [Unknown]
  - Mass [Unknown]
  - Drug hypersensitivity [Unknown]
  - Neck injury [Unknown]
  - Musculoskeletal discomfort [Unknown]
  - Viral infection [Unknown]
  - Product dose omission issue [Unknown]
  - Off label use [Unknown]
  - Gastroenteritis viral [Recovered/Resolved]
  - Body temperature increased [Unknown]
  - Influenza [Unknown]
  - Insomnia [Unknown]
  - Anxiety [Unknown]
  - Malaise [Unknown]
  - Pyrexia [Unknown]
  - Migraine [Unknown]
  - Sinusitis [Not Recovered/Not Resolved]
  - Insurance issue [Unknown]

NARRATIVE: CASE EVENT DATE: 20171110
